FAERS Safety Report 9804040 (Version 2)
Quarter: 2014Q1

REPORT INFORMATION
  Report Type: Spontaneous
  Country: US (occurrence: US)
  Receive Date: 20140108
  Receipt Date: 20140314
  Transmission Date: 20141002
  Serious: Yes (Other)
  Sender: FDA-Public Use
  Company Number: US-ELI_LILLY_AND_COMPANY-US201312008654

PATIENT
  Age: 47 Year
  Sex: Male
  Weight: 75.6 kg

DRUGS (11)
  1. HUMALOG 25% LISPRO, 75% NPL [Suspect]
     Indication: TYPE 2 DIABETES MELLITUS
     Dosage: 24 U, BID
     Route: 058
     Dates: start: 201312
  2. GLIPIZIDE [Concomitant]
     Indication: BLOOD GLUCOSE INCREASED
  3. LISINOPRIL [Concomitant]
     Dosage: 40 MG, QD
  4. NORVASC [Concomitant]
     Dosage: 10 MG, QD
  5. PRILOSEC                           /00661201/ [Concomitant]
     Dosage: 20 MG, QD
  6. OXYCODONE [Concomitant]
     Dosage: UNK
     Dates: end: 201312
  7. TRAMADOL [Concomitant]
     Dosage: UNK
     Dates: start: 2003
  8. HYDROCHLOROTHIAZIDE [Concomitant]
     Dosage: 12.5 DF, QD
  9. HYDROCHLOROTHIAZIDE [Concomitant]
     Dosage: 12.5 DF, OTHER
  10. HUMULIN 30/70 [Concomitant]
     Indication: TYPE 2 DIABETES MELLITUS
     Dosage: 24 U, BID
     Dates: end: 201312
  11. METFORMIN [Concomitant]

REACTIONS (12)
  - Brain neoplasm [Unknown]
  - Dysphemia [Not Recovered/Not Resolved]
  - Speech disorder [Not Recovered/Not Resolved]
  - Mood altered [Not Recovered/Not Resolved]
  - Balance disorder [Not Recovered/Not Resolved]
  - Confusional state [Not Recovered/Not Resolved]
  - Disturbance in attention [Unknown]
  - Blood glucose decreased [Unknown]
  - Blood glucose increased [Unknown]
  - Muscle spasms [Unknown]
  - Intentional drug misuse [Unknown]
  - Rotator cuff syndrome [Unknown]
